FAERS Safety Report 7152875-3 (Version None)
Quarter: 2010Q4

REPORT INFORMATION
  Report Type: 
  Country: None (occurrence: None)
  Receive Date: 20101213
  Receipt Date: 20101209
  Transmission Date: 20110411
  Serious: Yes (Death, Hospitalization)
  Sender: FDA-Public Use
  Company Number: PHHY2008US37010

PATIENT
  Sex: Female

DRUGS (2)
  1. EXJADE [Suspect]
     Indication: IRON METABOLISM DISORDER
     Dosage: 500 MG, BID
     Route: 048
     Dates: start: 20080701, end: 20100601
  2. EXJADE [Suspect]
     Indication: IRON OVERLOAD

REACTIONS (6)
  - DEATH [None]
  - HAEMOGLOBIN DECREASED [None]
  - NAUSEA [None]
  - PLATELET COUNT DECREASED [None]
  - SEPSIS [None]
  - WHITE BLOOD CELL COUNT DECREASED [None]
